FAERS Safety Report 4838903-6 (Version None)
Quarter: 2005Q4

REPORT INFORMATION
  Report Type: 
  Country: None (occurrence: None)
  Receive Date: 20051024
  Receipt Date: 20050919
  Transmission Date: 20060501
  Serious: No
  Sender: FDA-Public Use
  Company Number: 217906

PATIENT
  Age: 56 Year
  Sex: Male
  Weight: 142.9 kg

DRUGS (17)
  1. XOLAIR [Suspect]
     Indication: ASTHMA
     Dosage: Q2W
     Dates: start: 20050701
  2. ENALAPRIL MALEATE [Concomitant]
  3. ZANTAC [Concomitant]
  4. NAPROSYN [Concomitant]
  5. POTASSIUM (POTASSIUM NOS) [Concomitant]
  6. PROBENECID [Concomitant]
  7. COLCHICUM JTL LIQ [Concomitant]
  8. LASIX [Concomitant]
  9. LIPITOR [Concomitant]
  10. CARDIZEM [Concomitant]
  11. COUMADIN [Concomitant]
  12. ALBUTEROL [Concomitant]
  13. SPIRIVA [Concomitant]
  14. SINGULAIR [Concomitant]
  15. QVAR (BECLOMETHASONE DIPROPIONATE) [Concomitant]
  16. SEREVENT [Concomitant]
  17. PREDNISONE [Concomitant]

REACTIONS (3)
  - ERECTILE DYSFUNCTION [None]
  - PHARYNGOLARYNGEAL PAIN [None]
  - WEIGHT INCREASED [None]
